FAERS Safety Report 24313403 (Version 2)
Quarter: 2024Q3

REPORT INFORMATION
  Report Type: Spontaneous
  Country: US (occurrence: US)
  Receive Date: 20240912
  Receipt Date: 20240918
  Transmission Date: 20241017
  Serious: No
  Sender: NOVARTIS
  Company Number: US-002147023-NVSC2024US182894

PATIENT

DRUGS (1)
  1. LEQVIO [Suspect]
     Active Substance: INCLISIRAN SODIUM
     Indication: Low density lipoprotein increased
     Dosage: 284 MG, OTHER (DAY 1, DAY 90, EVERY 6 MONTHS THEREAFTER)
     Route: 058

REACTIONS (2)
  - Nasopharyngitis [Unknown]
  - Influenza [Unknown]
